FAERS Safety Report 20430398 (Version 1)
Quarter: 2022Q1

REPORT INFORMATION
  Report Type: Report from Study
  Country: FR (occurrence: FR)
  Receive Date: 20220204
  Receipt Date: 20220204
  Transmission Date: 20220423
  Serious: Yes (Other)
  Sender: FDA-Public Use
  Company Number: FR-SERVIER-S20007044

PATIENT

DRUGS (6)
  1. PEGASPARGASE [Suspect]
     Active Substance: PEGASPARGASE
     Indication: Acute lymphocytic leukaemia
     Dosage: 750 IU D4
     Route: 042
     Dates: start: 20200316, end: 20200316
  2. TN UNSPECIFIED [Concomitant]
     Indication: Acute lymphocytic leukaemia
     Dosage: 0.9 MG D1, D8, D15
     Route: 042
     Dates: start: 20200313, end: 20200327
  3. TN UNSPECIFIED [Concomitant]
     Indication: Acute lymphocytic leukaemia
     Dosage: 15.6 MG D1, D8, D15
     Route: 042
     Dates: start: 20200313, end: 20200327
  4. TN UNSPECIFIED [Concomitant]
     Indication: Acute lymphocytic leukaemia
     Dosage: 12 MG D4, D31
     Route: 037
     Dates: start: 20200316, end: 20200416
  5. TN UNSPECIFIED [Concomitant]
     Indication: Acute lymphocytic leukaemia
     Dosage: 6.2 MG D1 TO D14
     Route: 048
     Dates: start: 20200313, end: 20200326
  6. TN UNSPECIFIED [Concomitant]
     Indication: Acute lymphocytic leukaemia
     Dosage: 4 MG D29 TO D42
     Route: 048
     Dates: start: 20200414, end: 20200427

REACTIONS (1)
  - Catheter site thrombosis [Not Recovered/Not Resolved]

NARRATIVE: CASE EVENT DATE: 20200430
